FAERS Safety Report 4442669-1 (Version None)
Quarter: 2004Q3

REPORT INFORMATION
  Report Type: 
  Country: None (occurrence: None)
  Receive Date: 20040903
  Receipt Date: 20040621
  Transmission Date: 20050211
  Serious: Yes (Other)
  Sender: FDA-Public Use
  Company Number: 2004UW12837

PATIENT
  Age: 81 Year
  Sex: Female
  Weight: 63.5036 kg

DRUGS (5)
  1. CRESTOR [Suspect]
     Indication: HYPERCHOLESTEROLAEMIA
     Dosage: 10 MG PO
     Route: 048
     Dates: start: 20040101
  2. LISINOPRIL [Concomitant]
  3. GLYNASE [Concomitant]
  4. METFORMIN HCL [Concomitant]
  5. ACIPHEX [Concomitant]

REACTIONS (3)
  - ASTHENIA [None]
  - FALL [None]
  - MYALGIA [None]
